FAERS Safety Report 23911268 (Version 2)
Quarter: 2024Q4

REPORT INFORMATION
  Report Type: Spontaneous
  Country: US (occurrence: US)
  Receive Date: 20240528
  Receipt Date: 20241127
  Transmission Date: 20250115
  Serious: Yes (Other)
  Sender: MARINUS PHARMACEUTICALS
  Company Number: US-MARINUS PHARMACEUTICALS, INC.-MAR2024000087

PATIENT

DRUGS (1)
  1. ZTALMY [Suspect]
     Active Substance: GANAXOLONE
     Indication: CDKL5 deficiency disorder
     Dosage: 3 MILLILITER, TID
     Route: 048
     Dates: start: 20230108

REACTIONS (2)
  - Seizure [Unknown]
  - Intentional product use issue [None]

NARRATIVE: CASE EVENT DATE: 20240101
